FAERS Safety Report 12041289 (Version 1)
Quarter: 2016Q1

REPORT INFORMATION
  Report Type: Spontaneous
  Country: US (occurrence: US)
  Receive Date: 20160208
  Receipt Date: 20160208
  Transmission Date: 20160526
  Serious: No
  Sender: FDA-Public Use
  Company Number: US-PFIZER INC-2016068301

PATIENT
  Sex: Female

DRUGS (2)
  1. IBRANCE [Suspect]
     Active Substance: PALBOCICLIB
     Indication: NEOPLASM MALIGNANT
     Dosage: UNK UNK, CYCLIC (CYCLE 3)
  2. LETROZOLE. [Suspect]
     Active Substance: LETROZOLE
     Dosage: UNK UNK, CYCLIC (CYCLE 3)

REACTIONS (3)
  - Back pain [Unknown]
  - Disease progression [Unknown]
  - Neoplasm malignant [Unknown]
